FAERS Safety Report 24348923 (Version 1)
Quarter: 2024Q3

REPORT INFORMATION
  Report Type: Spontaneous
  Country: NL (occurrence: NL)
  Receive Date: 20240923
  Receipt Date: 20240923
  Transmission Date: 20241017
  Serious: Yes (Death, Other)
  Sender: NOVARTIS
  Company Number: NL-ITG-22-06-2022-02

PATIENT
  Sex: Female

DRUGS (9)
  1. LUTETIUM CHLORIDE LU-177 [Suspect]
     Active Substance: LUTETIUM CHLORIDE LU-177
     Indication: Radioisotope therapy
     Dosage: CYCLE #1, 7.4GBQ IN TEN-WEEKS INTERVALS
     Route: 065
  2. LUTETIUM CHLORIDE LU-177 [Suspect]
     Active Substance: LUTETIUM CHLORIDE LU-177
     Dosage: CYCLE #2, 7.4GBQ IN TEN-WEEKS INTERVALS
     Route: 065
  3. LUTETIUM CHLORIDE LU-177 [Suspect]
     Active Substance: LUTETIUM CHLORIDE LU-177
     Dosage: CYCLE #3, 7.4GBQ IN TEN-WEEKS INTERVALS
     Route: 065
  4. LUTETIUM CHLORIDE LU-177 [Suspect]
     Active Substance: LUTETIUM CHLORIDE LU-177
     Dosage: CYCLE #4, 7.4GBQ IN TEN-WEEKS INTERVALS
     Route: 065
  5. LUTETIUM OXODOTREOTIDE LU-177 [Suspect]
     Active Substance: LUTETIUM OXODOTREOTIDE LU-177
     Indication: Neuroendocrine tumour
     Dosage: CYCLE #1, 7.4GBQ IN TEN-WEEKS INTERVALS
     Route: 065
  6. LUTETIUM OXODOTREOTIDE LU-177 [Suspect]
     Active Substance: LUTETIUM OXODOTREOTIDE LU-177
     Dosage: CYCLE #2, 7.4GBQ IN TEN-WEEKS INTERVALS
     Route: 065
  7. LUTETIUM OXODOTREOTIDE LU-177 [Suspect]
     Active Substance: LUTETIUM OXODOTREOTIDE LU-177
     Dosage: CYCLE #3, 7.4GBQ IN TEN-WEEKS INTERVALS
     Route: 065
  8. LUTETIUM OXODOTREOTIDE LU-177 [Suspect]
     Active Substance: LUTETIUM OXODOTREOTIDE LU-177
     Dosage: CYCLE #4, 7.4GBQ IN TEN-WEEKS INTERVALS
     Route: 065
  9. AMINO ACIDS [Concomitant]
     Active Substance: AMINO ACIDS
     Indication: Nephroprotective therapy
     Dosage: UNK
     Route: 065

REACTIONS (6)
  - Right ventricular failure [Fatal]
  - Ascites [Unknown]
  - Tricuspid valve incompetence [Unknown]
  - Pleural effusion [Unknown]
  - General physical health deterioration [Unknown]
  - Palpitations [Unknown]
